FAERS Safety Report 16357637 (Version 2)
Quarter: 2019Q2

REPORT INFORMATION
  Report Type: Spontaneous
  Country: US (occurrence: US)
  Receive Date: 20190527
  Receipt Date: 20190604
  Transmission Date: 20190711
  Serious: Yes (Other)
  Sender: FDA-Public Use
  Company Number: US-PFIZER INC-2019226301

PATIENT
  Age: 5 Year
  Sex: Female

DRUGS (14)
  1. CYCLOPHOSPHAMIDE. [Suspect]
     Active Substance: CYCLOPHOSPHAMIDE
     Indication: METASTASES TO SPINE
  2. CARBOPLATIN. [Suspect]
     Active Substance: CARBOPLATIN
     Indication: CEREBELLAR TUMOUR
     Dosage: PART OF THE HEAD START IV PROTOCOL
     Route: 065
  3. ETOPOSIDE. [Suspect]
     Active Substance: ETOPOSIDE
     Indication: CEREBELLAR TUMOUR
     Dosage: PART OF THE HEAD START IV PROTOCOL
     Route: 065
  4. ETOPOSIDE. [Suspect]
     Active Substance: ETOPOSIDE
     Indication: METASTASES TO SPINE
  5. CISPLATIN. [Suspect]
     Active Substance: CISPLATIN
     Indication: METASTASES TO SPINE
  6. VINCRISTINE SULFATE. [Suspect]
     Active Substance: VINCRISTINE SULFATE
     Indication: CEREBELLAR TUMOUR
     Dosage: PART OF THE HEAD START IV PROTOCOL
     Route: 065
  7. METHOTREXATE SODIUM. [Suspect]
     Active Substance: METHOTREXATE SODIUM
     Indication: CEREBELLAR TUMOUR
     Dosage: PART OF THE HEAD START IV PROTOCOL- HIGH DOSE
     Route: 065
  8. THIOTEPA. [Suspect]
     Active Substance: THIOTEPA
     Indication: METASTASES TO SPINE
  9. VINCRISTINE SULFATE. [Suspect]
     Active Substance: VINCRISTINE SULFATE
     Indication: METASTASES TO SPINE
  10. THIOTEPA. [Suspect]
     Active Substance: THIOTEPA
     Indication: CEREBELLAR TUMOUR
     Dosage: PART OF THE HEAD START IV PROTOCOL
     Route: 065
  11. METHOTREXATE SODIUM. [Suspect]
     Active Substance: METHOTREXATE SODIUM
     Indication: METASTASES TO SPINE
  12. CISPLATIN. [Suspect]
     Active Substance: CISPLATIN
     Indication: CEREBELLAR TUMOUR
     Dosage: PART OF THE HEAD START IV PROTOCOL
     Route: 065
  13. CYCLOPHOSPHAMIDE. [Suspect]
     Active Substance: CYCLOPHOSPHAMIDE
     Indication: CEREBELLAR TUMOUR
     Dosage: PART OF THE HEAD START IV PROTOCOL
     Route: 065
  14. CARBOPLATIN. [Suspect]
     Active Substance: CARBOPLATIN
     Indication: METASTASES TO SPINE

REACTIONS (1)
  - Venoocclusive liver disease [Unknown]
